FAERS Safety Report 4461199-4 (Version None)
Quarter: 2004Q3

REPORT INFORMATION
  Report Type: 
  Country: None (occurrence: None)
  Receive Date: 20040928
  Receipt Date: 20040819
  Transmission Date: 20050211
  Serious: Yes (Hospitalization)
  Sender: FDA-Public Use
  Company Number: FR-BRISTOL-MYERS SQUIBB COMPANY-12678215

PATIENT
  Age: 69 Year
  Sex: Female

DRUGS (6)
  1. AXEPIM INJ 2 GM [Suspect]
     Indication: CELLULITIS
     Route: 042
     Dates: start: 20040625, end: 20040706
  2. AXEPIM INJ 2 GM [Suspect]
     Indication: ABSCESS LIMB
     Route: 042
     Dates: start: 20040625, end: 20040706
  3. CIPROFLOXACIN [Suspect]
     Indication: ABSCESS LIMB
     Route: 048
     Dates: start: 20040625, end: 20040706
  4. CIPROFLOXACIN [Suspect]
     Indication: CELLULITIS
     Route: 048
     Dates: start: 20040625, end: 20040706
  5. DALACINE [Suspect]
     Indication: ABSCESS LIMB
     Dosage: 300 MG CAPSULES - 6 CAPSULES DAILY
     Route: 048
     Dates: start: 20040625, end: 20040706
  6. DALACINE [Suspect]
     Indication: CELLULITIS
     Dosage: 300 MG CAPSULES - 6 CAPSULES DAILY
     Route: 048
     Dates: start: 20040625, end: 20040706

REACTIONS (2)
  - ACIDOSIS [None]
  - METABOLIC ACIDOSIS [None]
